FAERS Safety Report 8333116-8 (Version None)
Quarter: 2012Q2

REPORT INFORMATION
  Report Type: 
  Country: None (occurrence: None)
  Receive Date: 20120503
  Receipt Date: 20120502
  Transmission Date: 20120825
  Serious: Yes (Death)
  Sender: FDA-Public Use
  Company Number: PHHY2012MX035295

PATIENT
  Sex: Female

DRUGS (3)
  1. CORDARONE [Concomitant]
     Dosage: 0.5 DF, DAILY
  2. EXFORGE [Suspect]
     Indication: HYPERTENSION
     Dosage: 1 DF (160/10MG) DAILY
  3. EXFORGE [Suspect]
     Dosage: 0.5 DF (160/10MG) DAILY
     Dates: start: 20120201

REACTIONS (3)
  - WRONG TECHNIQUE IN DRUG USAGE PROCESS [None]
  - DEATH [None]
  - BLOOD PRESSURE DECREASED [None]
